FAERS Safety Report 22009608 (Version 1)
Quarter: 2023Q1

REPORT INFORMATION
  Report Type: Report from Study
  Country: US (occurrence: US)
  Receive Date: 20230220
  Receipt Date: 20230220
  Transmission Date: 20230418
  Serious: Yes (Hospitalization)
  Sender: FDA-Public Use
  Company Number: US-ABBVIE-4310383

PATIENT
  Age: 80 Year
  Sex: Male

DRUGS (1)
  1. SKYRIZI [Suspect]
     Active Substance: RISANKIZUMAB-RZAA
     Indication: Psoriasis
     Route: 058
     Dates: start: 20230203, end: 20230203

REACTIONS (16)
  - Mental impairment [Not Recovered/Not Resolved]
  - Rhinorrhoea [Recovered/Resolved]
  - Agitation [Recovered/Resolved]
  - Gait disturbance [Unknown]
  - Dysarthria [Not Recovered/Not Resolved]
  - Hallucination [Recovered/Resolved]
  - Hyperhidrosis [Recovered/Resolved]
  - Hypothermia [Recovered/Resolved]
  - Eye pruritus [Recovered/Resolved]
  - Disturbance in attention [Not Recovered/Not Resolved]
  - Skin exfoliation [Not Recovered/Not Resolved]
  - Urine abnormality [Recovered/Resolved]
  - Disorientation [Not Recovered/Not Resolved]
  - Lacrimation increased [Recovered/Resolved]
  - Bacterial infection [Recovering/Resolving]
  - Drooling [Unknown]

NARRATIVE: CASE EVENT DATE: 20230204
